FAERS Safety Report 9308110 (Version 2)
Quarter: 2013Q3

REPORT INFORMATION
  Report Type: Spontaneous
  Country: US (occurrence: US)
  Receive Date: 20130524
  Receipt Date: 20130708
  Transmission Date: 20140515
  Serious: Yes (Hospitalization, Other)
  Sender: FDA-Public Use
  Company Number: US-PFIZER INC-2013159660

PATIENT
  Age: 54 Year
  Sex: Female

DRUGS (3)
  1. CHANTIX [Suspect]
     Indication: SMOKING CESSATION THERAPY
     Dosage: 0.5 MG, 1X/DAY (ONE PILL IN THE MORNING)
     Route: 048
     Dates: start: 20121231, end: 201301
  2. CHANTIX [Suspect]
     Dosage: 0.5 MG, 2X/DAY
     Route: 048
     Dates: start: 201301, end: 201301
  3. CHANTIX [Suspect]
     Dosage: 1 MG, 2X/DAY
     Route: 048
     Dates: start: 201301

REACTIONS (6)
  - Amnesia [Recovered/Resolved]
  - Fall [Unknown]
  - Head injury [Unknown]
  - Mental status changes [Unknown]
  - Contusion [Unknown]
  - Thermal burn [Unknown]
